FAERS Safety Report 17261508 (Version 3)
Quarter: 2020Q1

REPORT INFORMATION
  Report Type: Spontaneous
  Country: US (occurrence: US)
  Receive Date: 20200113
  Receipt Date: 20200207
  Transmission Date: 20200409
  Serious: Yes (Hospitalization, Other)
  Sender: FDA-Public Use
  Company Number: US-AMGEN-USASP2020002664

PATIENT
  Age: 67 Year
  Sex: Female
  Weight: 48.98 kg

DRUGS (1)
  1. REPATHA [Suspect]
     Active Substance: EVOLOCUMAB
     Indication: BLOOD CHOLESTEROL INCREASED
     Dosage: UNK
     Route: 065
     Dates: start: 2017

REACTIONS (3)
  - Clostridium difficile infection [Unknown]
  - Pneumonia [Unknown]
  - Device issue [Unknown]

NARRATIVE: CASE EVENT DATE: 201908
